FAERS Safety Report 4666814-8 (Version None)
Quarter: 2005Q2

REPORT INFORMATION
  Report Type: 
  Country: None (occurrence: None)
  Receive Date: 20050519
  Receipt Date: 20041217
  Transmission Date: 20051028
  Serious: Yes (Hospitalization, Disabling)
  Sender: FDA-Public Use
  Company Number: DE-MERCK-0412DEU00162

PATIENT
  Age: 66 Year
  Sex: Male

DRUGS (13)
  1. VIOXX [Suspect]
     Indication: CERVICOBRACHIAL SYNDROME
     Route: 048
     Dates: start: 20020813, end: 20020821
  2. VIOXX [Suspect]
     Route: 048
     Dates: start: 20030530, end: 20030623
  3. VIOXX [Suspect]
     Route: 048
     Dates: start: 20030624
  4. VIOXX [Suspect]
     Indication: CAUDA EQUINA SYNDROME
     Route: 048
     Dates: start: 20020813, end: 20020821
  5. VIOXX [Suspect]
     Route: 048
     Dates: start: 20030530, end: 20030623
  6. VIOXX [Suspect]
     Route: 048
     Dates: start: 20030624
  7. CELECOXIB [Concomitant]
     Indication: CERVICOBRACHIAL SYNDROME
     Route: 048
     Dates: start: 20020823, end: 20030501
  8. CELECOXIB [Concomitant]
     Indication: CAUDA EQUINA SYNDROME
     Route: 048
     Dates: start: 20020823, end: 20030501
  9. PANTOPRAZOLE SODIUM [Concomitant]
     Route: 048
  10. RAMIPRIL [Concomitant]
     Route: 048
  11. HEPARIN [Concomitant]
     Route: 065
  12. RAMIPRIL [Concomitant]
     Route: 048
  13. FLUNARIZINE HYDROCHLORIDE [Concomitant]
     Route: 048

REACTIONS (4)
  - BLOOD GLUCOSE INCREASED [None]
  - BLOOD PRESSURE INCREASED [None]
  - CEREBRAL ATROPHY [None]
  - CEREBROVASCULAR ACCIDENT [None]
